FAERS Safety Report 6873002-3 (Version None)
Quarter: 2010Q3

REPORT INFORMATION
  Report Type: 
  Country: None (occurrence: None)
  Receive Date: 20100723
  Receipt Date: 20081125
  Transmission Date: 20110219
  Serious: No
  Sender: FDA-Public Use
  Company Number: US-PFIZER INC-2008099164

PATIENT
  Sex: Male

DRUGS (9)
  1. CHANTIX [Suspect]
     Indication: EX-TOBACCO USER
     Dates: end: 20080101
  2. PLAVIX [Concomitant]
  3. SYNTHROID [Concomitant]
  4. LIPITOR [Concomitant]
  5. ISOSORBIDE [Concomitant]
  6. LORTAB [Concomitant]
  7. ATIVAN [Concomitant]
  8. MOTRIN [Concomitant]
  9. TOPROL-XL [Concomitant]

REACTIONS (2)
  - DRUG INEFFECTIVE [None]
  - TOBACCO USER [None]
